FAERS Safety Report 18568556 (Version 1)
Quarter: 2020Q4

REPORT INFORMATION
  Report Type: Spontaneous
  Country: US (occurrence: US)
  Receive Date: 20201202
  Receipt Date: 20201202
  Transmission Date: 20210114
  Serious: No
  Sender: FDA-Public Use
  Company Number: US-SA-2020SA340885

PATIENT

DRUGS (1)
  1. ALLEGRA ALLERGY [Suspect]
     Active Substance: FEXOFENADINE HYDROCHLORIDE
     Dosage: ONLY TAKEN 12 TABLETS
     Route: 065

REACTIONS (3)
  - Sinus disorder [Unknown]
  - Rhinorrhoea [Unknown]
  - Ear congestion [Unknown]
